FAERS Safety Report 8513786-1 (Version None)
Quarter: 2012Q3

REPORT INFORMATION
  Report Type: 
  Country: None (occurrence: None)
  Receive Date: 20120717
  Receipt Date: 20120709
  Transmission Date: 20120928
  Serious: Yes (Hospitalization, Other)
  Sender: FDA-Public Use
  Company Number: US-ASTELLAS-2012US005643

PATIENT
  Sex: Female
  Weight: 90 kg

DRUGS (5)
  1. PREDNISONE [Suspect]
     Indication: RENAL TRANSPLANT
     Dosage: UNK
     Route: 065
     Dates: start: 20090903
  2. CELLCEPT [Concomitant]
     Indication: RENAL TRANSPLANT
     Dosage: UNK
     Route: 065
     Dates: start: 20090903
  3. INSULIN [Concomitant]
     Indication: DIABETES MELLITUS
     Dosage: UNK
     Route: 065
  4. PROGRAF [Suspect]
     Indication: RENAL TRANSPLANT
     Dosage: 10 MG, UID/QD
     Route: 048
     Dates: start: 20090903
  5. GENGRAF [Concomitant]
     Indication: RENAL TRANSPLANT
     Dosage: UNK
     Route: 065

REACTIONS (6)
  - POST PROCEDURAL COMPLICATION [None]
  - DISEASE COMPLICATION [None]
  - ROAD TRAFFIC ACCIDENT [None]
  - KIDNEY TRANSPLANT REJECTION [None]
  - OSTEOPOROSIS [None]
  - CERVICAL VERTEBRAL FRACTURE [None]
